FAERS Safety Report 4524265-0 (Version None)
Quarter: 2004Q4

REPORT INFORMATION
  Report Type: 
  Country: None (occurrence: None)
  Receive Date: 20041119
  Receipt Date: 20040728
  Transmission Date: 20050328
  Serious: Yes (Hospitalization)
  Sender: FDA-Public Use
  Company Number: 207864

PATIENT
  Age: 54 Year
  Sex: Female
  Weight: 117.9 kg

DRUGS (14)
  1. RAPTIVA [Suspect]
     Indication: PSORIASIS
     Dosage: 0.8 MG, SINGLE, SUBCUTANEOUS; 1.2 MG, 1/WEEK, SUBCUTANEOUS
     Route: 058
     Dates: start: 20040701, end: 20040701
  2. RAPTIVA [Suspect]
     Indication: PSORIASIS
     Dosage: 0.8 MG, SINGLE, SUBCUTANEOUS; 1.2 MG, 1/WEEK, SUBCUTANEOUS
     Route: 058
     Dates: start: 20040714, end: 20040714
  3. DILANTIN [Concomitant]
  4. METOPROLOL TARTRATE [Concomitant]
  5. ARICEPT [Concomitant]
  6. TRAZODONE (TRAZODONE HYDROCHLORIDE) [Concomitant]
  7. VIOXX [Concomitant]
  8. ESTRATEST [Concomitant]
  9. TEMAZEPAM [Concomitant]
  10. DIAZEPAM [Concomitant]
  11. IMIPRAM (IMIPRAMINE HYDROCHLORIDE) [Concomitant]
  12. DARVOCET [Concomitant]
  13. ZOLOFT [Concomitant]
  14. LAMICTAL [Concomitant]

REACTIONS (2)
  - HEPATITIS A [None]
  - HEPATITIS B [None]
